FAERS Safety Report 15455398 (Version 1)
Quarter: 2018Q4

REPORT INFORMATION
  Report Type: Report from Study
  Country: US (occurrence: US)
  Receive Date: 20181002
  Receipt Date: 20181002
  Transmission Date: 20190204
  Serious: Yes (Hospitalization)
  Sender: FDA-Public Use
  Company Number: US-GILEAD-2018-0365913

PATIENT
  Age: 64 Year
  Sex: Male

DRUGS (15)
  1. LIPITOR [Concomitant]
     Active Substance: ATORVASTATIN CALCIUM
  2. SILDENAFIL. [Concomitant]
     Active Substance: SILDENAFIL
  3. VENTOLIN [Concomitant]
     Active Substance: ALBUTEROL SULFATE
  4. RANITIDINE. [Concomitant]
     Active Substance: RANITIDINE
  5. METOPROLOL. [Concomitant]
     Active Substance: METOPROLOL
  6. TYLENOL [Concomitant]
     Active Substance: ACETAMINOPHEN
  7. FUROSEMIDE. [Concomitant]
     Active Substance: FUROSEMIDE
  8. BASAGLAR [Concomitant]
     Active Substance: INSULIN GLARGINE
  9. CITALOPRAM [Concomitant]
     Active Substance: CITALOPRAM HYDROBROMIDE
  10. AMBRISENTAN [Suspect]
     Active Substance: AMBRISENTAN
     Indication: PULMONARY HYPERTENSION
     Dosage: 5 MG, QD
     Route: 065
  11. SUCRALFATE. [Concomitant]
     Active Substance: SUCRALFATE
  12. LISINOPRIL. [Concomitant]
     Active Substance: LISINOPRIL
  13. BUSPIRONE [Concomitant]
     Active Substance: BUSPIRONE HYDROCHLORIDE
  14. SPIRONOLACTONE. [Concomitant]
     Active Substance: SPIRONOLACTONE
  15. FARXIGA [Concomitant]
     Active Substance: DAPAGLIFLOZIN PROPANEDIOL

REACTIONS (3)
  - Chest pain [Recovered/Resolved]
  - Dyspnoea [Recovered/Resolved]
  - Fluid retention [Unknown]

NARRATIVE: CASE EVENT DATE: 20180924
